FAERS Safety Report 9514753 (Version 1)
Quarter: 2013Q3

REPORT INFORMATION
  Report Type: Spontaneous
  Country: FR (occurrence: None)
  Receive Date: 20130906
  Receipt Date: 20130906
  Transmission Date: 20140515
  Serious: Yes (Death)
  Sender: FDA-Public Use
  Company Number: SYM-2013-10334

PATIENT
  Age: 91 Year
  Sex: Female

DRUGS (7)
  1. FLAGYL [Suspect]
     Indication: VAGINAL DISCHARGE
     Route: 067
     Dates: start: 20130118, end: 20130127
  2. LOVENOX [Suspect]
     Indication: PROPHYLAXIS
     Route: 058
     Dates: start: 20130115, end: 20130129
  3. DOLIPRANE [Suspect]
     Indication: PAIN
     Route: 048
     Dates: start: 20130121, end: 20130129
  4. AMOXICILLIN [Suspect]
     Indication: INFECTION
     Dosage: ?
     Route: 042
     Dates: start: 20130122, end: 20130129
  5. MOVICOL [Suspect]
     Indication: CONSTIPATION
     Route: 048
     Dates: start: 20130120, end: 20130129
  6. AMLOR [Suspect]
     Indication: HYPERTENSION
     Route: 048
     Dates: start: 20130120, end: 20130125
  7. CEFTRIAXONE [Concomitant]

REACTIONS (6)
  - General physical health deterioration [None]
  - Confusional state [None]
  - Dehydration [None]
  - Hyponatraemia [None]
  - Renal failure acute [None]
  - Tubulointerstitial nephritis [None]
